FAERS Safety Report 19140681 (Version 1)
Quarter: 2021Q2

REPORT INFORMATION
  Report Type: Spontaneous
  Country: CA (occurrence: CA)
  Receive Date: 20210415
  Receipt Date: 20210415
  Transmission Date: 20210717
  Serious: Yes (Hospitalization)
  Sender: FDA-Public Use
  Company Number: CA-PFIZER INC-2021376862

PATIENT
  Age: 71 Year
  Sex: Male

DRUGS (6)
  1. ACH CAPECITABINE [Suspect]
     Active Substance: CAPECITABINE
     Indication: RECTAL CANCER METASTATIC
     Dosage: 1500 MG, 2X/DAY
  2. OXALIPLATIN. [Suspect]
     Active Substance: OXALIPLATIN
     Indication: RECTAL CANCER METASTATIC
     Dosage: 243.0 MG, EVERY 3 WEEKS
  3. DEXAMETHASONE. [Concomitant]
     Active Substance: DEXAMETHASONE
  4. GRANISETRON [Concomitant]
     Active Substance: GRANISETRON
  5. RIVAROXABAN [Concomitant]
     Active Substance: RIVAROXABAN
  6. TAMSULOSIN [Concomitant]
     Active Substance: TAMSULOSIN

REACTIONS (6)
  - Abdominal discomfort [Recovered/Resolved]
  - Pyrexia [Recovered/Resolved]
  - Chills [Recovered/Resolved]
  - Oxygen saturation decreased [Recovered/Resolved]
  - Hypotension [Recovered/Resolved]
  - Nausea [Recovered/Resolved]
